FAERS Safety Report 8578435-5 (Version None)
Quarter: 2012Q3

REPORT INFORMATION
  Report Type: 
  Country: None (occurrence: None)
  Receive Date: 20120726
  Receipt Date: 20120723
  Transmission Date: 20120928
  Serious: Yes (Other)
  Sender: FDA-Public Use
  Company Number: FK201201967

PATIENT
  Age: 29 Year
  Sex: Male

DRUGS (1)
  1. SODIUM ACETATE [Suspect]
     Indication: METABOLIC ACIDOSIS
     Dosage: SEE IMAGE

REACTIONS (1)
  - LACTIC ACIDOSIS [None]
